FAERS Safety Report 24145845 (Version 2)
Quarter: 2024Q3

REPORT INFORMATION
  Report Type: Spontaneous
  Country: IT (occurrence: IT)
  Receive Date: 20240729
  Receipt Date: 20240809
  Transmission Date: 20241016
  Serious: Yes (Other)
  Sender: TEVA
  Company Number: IT-TEVA-VS-3223414

PATIENT
  Age: 56 Year
  Sex: Female

DRUGS (1)
  1. FLUTICASONE PROPIONATE [Suspect]
     Active Substance: FLUTICASONE PROPIONATE
     Indication: Asthma
     Route: 055

REACTIONS (2)
  - Leishmaniasis [Recovered/Resolved]
  - Laryngeal disorder [Recovered/Resolved]
